FAERS Safety Report 7980293-4 (Version None)
Quarter: 2011Q4

REPORT INFORMATION
  Report Type: 
  Country: None (occurrence: None)
  Receive Date: 20111212
  Receipt Date: 20111125
  Transmission Date: 20120403
  Serious: Yes (Hospitalization)
  Sender: FDA-Public Use
  Company Number: 2011AP002842

PATIENT
  Age: 55 Year
  Sex: Male

DRUGS (4)
  1. VENLAFAXINE [Concomitant]
  2. OMEPRAZOLE [Suspect]
     Indication: HIATUS HERNIA
     Dosage: 20 MG;;QD;
  3. VALSARTAN [Concomitant]
  4. BISOPROLOL FUMARATE [Concomitant]

REACTIONS (9)
  - HYPOKALAEMIA [None]
  - DIARRHOEA [None]
  - ELECTROCARDIOGRAM QT PROLONGED [None]
  - HYPOCALCAEMIA [None]
  - ABDOMINAL PAIN UPPER [None]
  - HYPOMAGNESAEMIA [None]
  - VOMITING [None]
  - NAUSEA [None]
  - PARAESTHESIA [None]
